FAERS Safety Report 23006353 (Version 3)
Quarter: 2023Q4

REPORT INFORMATION
  Report Type: Spontaneous
  Country: JP (occurrence: JP)
  Receive Date: 20230929
  Receipt Date: 20231009
  Transmission Date: 20240109
  Serious: Yes (Hospitalization)
  Sender: FDA-Public Use
  Company Number: JP-MTPC-MTPC2023-0023779

PATIENT
  Age: 82 Year
  Sex: Male

DRUGS (4)
  1. EDARAVONE [Suspect]
     Active Substance: EDARAVONE
     Dosage: 5 MILLILITER, QD
     Route: 048
     Dates: start: 20230919, end: 20230922
  2. EDARAVONE [Suspect]
     Active Substance: EDARAVONE
     Dosage: 5 MILLILITER, QD
     Route: 048
     Dates: start: 20230919, end: 20230922
  3. EDARAVONE [Suspect]
     Active Substance: EDARAVONE
     Indication: Amyotrophic lateral sclerosis
     Dosage: UNK UNK, QD
     Route: 048
  4. EDARAVONE [Suspect]
     Active Substance: EDARAVONE
     Indication: Amyotrophic lateral sclerosis
     Dosage: UNK UNK, QD
     Route: 048

REACTIONS (1)
  - Urinary tract infection [Not Recovered/Not Resolved]

NARRATIVE: CASE EVENT DATE: 20230922
